FAERS Safety Report 17161222 (Version 1)
Quarter: 2019Q4

REPORT INFORMATION
  Report Type: Spontaneous
  Country: US (occurrence: US)
  Receive Date: 20191216
  Receipt Date: 20191216
  Transmission Date: 20200122
  Serious: No
  Sender: FDA-Public Use
  Company Number: NVSC2019US069905

PATIENT
  Age: 16 Month
  Sex: Female

DRUGS (6)
  1. MYCOPHENOLATE MOFETIL. [Suspect]
     Active Substance: MYCOPHENOLATE MOFETIL
     Indication: MALIGNANT HYPERTENSION
  2. CYCLOPHOSPHAMIDE. [Suspect]
     Active Substance: CYCLOPHOSPHAMIDE
     Indication: MALIGNANT HYPERTENSION
  3. SOLU-MEDROL [Suspect]
     Active Substance: METHYLPREDNISOLONE SODIUM SUCCINATE
     Indication: TAKAYASU^S ARTERITIS
     Dosage: UNK
     Route: 065
  4. MYCOPHENOLATE MOFETIL. [Suspect]
     Active Substance: MYCOPHENOLATE MOFETIL
     Indication: TAKAYASU^S ARTERITIS
     Dosage: UNK
     Route: 065
  5. CYCLOPHOSPHAMIDE. [Suspect]
     Active Substance: CYCLOPHOSPHAMIDE
     Indication: TAKAYASU^S ARTERITIS
     Dosage: UNK
     Route: 065
  6. SOLU-MEDROL [Suspect]
     Active Substance: METHYLPREDNISOLONE SODIUM SUCCINATE
     Indication: MALIGNANT HYPERTENSION

REACTIONS (2)
  - Product use in unapproved indication [Unknown]
  - Drug ineffective [Unknown]
